FAERS Safety Report 6424567-7 (Version None)
Quarter: 2009Q4

REPORT INFORMATION
  Report Type: 
  Country: None (occurrence: None)
  Receive Date: 20091103
  Receipt Date: 20091020
  Transmission Date: 20100525
  Serious: Yes (Hospitalization, Other)
  Sender: FDA-Public Use
  Company Number: PHHY2009NZ45651

PATIENT
  Sex: Male

DRUGS (3)
  1. CLOZARIL [Suspect]
     Indication: SCHIZOPHRENIA
     Dosage: 650 MG, UNK
     Dates: start: 19900101
  2. BENZTROPEINE [Concomitant]
     Indication: SALIVARY HYPERSECRETION
     Dosage: 2 MG, UNK
  3. RISPERIDONE [Concomitant]
     Dosage: 2 MG, UNK

REACTIONS (3)
  - CONSTIPATION [None]
  - MEGACOLON [None]
  - SALIVARY HYPERSECRETION [None]
